FAERS Safety Report 23318278 (Version 1)
Quarter: 2023Q4

REPORT INFORMATION
  Report Type: Spontaneous
  Country: FR (occurrence: FR)
  Receive Date: 20231220
  Receipt Date: 20231220
  Transmission Date: 20240109
  Serious: Yes (Hospitalization)
  Sender: FDA-Public Use
  Company Number: FR-AFSSAPS-ST2023001567

PATIENT
  Age: 34 Year
  Sex: Female

DRUGS (2)
  1. LIDOCAINE [Suspect]
     Active Substance: LIDOCAINE
     Indication: Anaesthesia
     Dosage: 1 DOSAGE FORM
     Route: 058
     Dates: start: 20230209, end: 20230209
  2. BETADINE [Suspect]
     Active Substance: POVIDONE-IODINE
     Indication: Infection prophylaxis
     Dosage: 1 DOSAGE FORM
     Route: 003
     Dates: start: 20230209, end: 20230209

REACTIONS (4)
  - Injection site erythema [Recovered/Resolved]
  - Malaise [Recovered/Resolved]
  - Hyperhidrosis [Recovered/Resolved]
  - Hypotension [Recovered/Resolved]

NARRATIVE: CASE EVENT DATE: 20230209
